FAERS Safety Report 10475302 (Version 1)
Quarter: 2014Q3

REPORT INFORMATION
  Report Type: Spontaneous
  Country: US (occurrence: US)
  Receive Date: 20140925
  Receipt Date: 20140925
  Transmission Date: 20150326
  Serious: Yes (Other)
  Sender: FDA-Public Use
  Company Number: US-MYLANLABS-2014S1006416

PATIENT
  Sex: Male

DRUGS (1)
  1. METHADONE HCL [Suspect]
     Active Substance: METHADONE HYDROCHLORIDE
     Dosage: UNK
     Route: 042

REACTIONS (3)
  - Intentional product misuse [Unknown]
  - Drug diversion [Recovered/Resolved]
  - Drug abuser [Recovered/Resolved]

NARRATIVE: CASE EVENT DATE: 201401
